FAERS Safety Report 5002371-4 (Version None)
Quarter: 2006Q2

REPORT INFORMATION
  Report Type: 
  Country: None (occurrence: None)
  Receive Date: 20060515
  Receipt Date: 20060511
  Transmission Date: 20061013
  Serious: Yes (Hospitalization, Other)
  Sender: FDA-Public Use
  Company Number: CZ-BOEHRINGER INGELHEIM PHARMACEUTICALS, INC.-2006-DE-02445GD

PATIENT
  Age: 39 Year
  Sex: Female

DRUGS (7)
  1. MELOXICAM [Suspect]
     Indication: ARTHRITIS
  2. AZATHIOPRINE [Suspect]
     Indication: SYSTEMIC LUPUS ERYTHEMATOSUS
  3. AZATHIOPRINE [Suspect]
  4. TERBINAFINE HCL [Suspect]
     Indication: ONYCHOMYCOSIS
  5. METHYLPREDNISOLONE [Suspect]
     Indication: SYSTEMIC LUPUS ERYTHEMATOSUS
  6. METHYLPREDNISOLONE [Suspect]
     Route: 048
  7. FAMOTIDINE [Suspect]

REACTIONS (11)
  - ANTINUCLEAR ANTIBODY POSITIVE [None]
  - ARTHRALGIA [None]
  - CONDITION AGGRAVATED [None]
  - DRUG INEFFECTIVE [None]
  - FATIGUE [None]
  - HYPERKERATOSIS [None]
  - MALAISE [None]
  - MYALGIA [None]
  - PERICARDITIS [None]
  - PLEURISY [None]
  - RASH MACULO-PAPULAR [None]
